FAERS Safety Report 8195615-1 (Version None)
Quarter: 2012Q1

REPORT INFORMATION
  Report Type: 
  Country: None (occurrence: None)
  Receive Date: 20120308
  Receipt Date: 20120301
  Transmission Date: 20120608
  Serious: Yes (Hospitalization, Other)
  Sender: FDA-Public Use
  Company Number: US-ABBOTT-12P-163-0910173-00

PATIENT
  Sex: Male
  Weight: 100.79 kg

DRUGS (10)
  1. ATIVAN [Concomitant]
     Indication: PRODUCT USED FOR UNKNOWN INDICATION
     Dosage: 1/2-0.5MG PILL AS NEEDED
  2. POTASSIUM CHLORIDE CR [Concomitant]
     Indication: PRODUCT USED FOR UNKNOWN INDICATION
  3. FISH OIL [Concomitant]
     Indication: PRODUCT USED FOR UNKNOWN INDICATION
  4. AMLODIPINE [Concomitant]
     Indication: PRODUCT USED FOR UNKNOWN INDICATION
     Dosage: 1/2-5MG PILL DAILY
  5. NIASPAN [Suspect]
     Indication: HIGH DENSITY LIPOPROTEIN DECREASED
     Dosage: MD GRADUALLY INCREASED DOSING
     Dates: start: 20110101
  6. TRICOR [Concomitant]
     Indication: PRODUCT USED FOR UNKNOWN INDICATION
  7. MICARDIS HCT [Concomitant]
     Indication: BLOOD PRESSURE
     Dosage: 80MG/12.5MG DAILY
  8. NIASPAN [Suspect]
     Dosage: IN THE MIDDLE OF THE MORNING
  9. ASPIRIN [Concomitant]
     Indication: PRODUCT USED FOR UNKNOWN INDICATION
  10. CITALOPRAM HYDROBROMIDE [Concomitant]
     Indication: PRODUCT USED FOR UNKNOWN INDICATION

REACTIONS (9)
  - BURNING SENSATION [None]
  - ARTHRALGIA [None]
  - FLUSHING [None]
  - ASTHENIA [None]
  - STAPHYLOCOCCAL INFECTION [None]
  - BALANCE DISORDER [None]
  - FEELING ABNORMAL [None]
  - FALL [None]
  - WEIGHT DECREASED [None]
